FAERS Safety Report 18914381 (Version 1)
Quarter: 2021Q1

REPORT INFORMATION
  Report Type: Spontaneous
  Country: GB (occurrence: GB)
  Receive Date: 20210218
  Receipt Date: 20210218
  Transmission Date: 20210420
  Serious: Yes (Life-Threatening)
  Sender: FDA-Public Use
  Company Number: GB-TEVA-2021-GB-1878416

PATIENT
  Age: 55 Year
  Sex: Female

DRUGS (7)
  1. OTOMIZE [Concomitant]
     Dosage: SPRAY ONE METERED DOSE INTO AFFECTED EAR(S) THR...
     Dates: start: 20210127
  2. RAMIPRIL. [Suspect]
     Active Substance: RAMIPRIL
     Dosage: 10 MG
     Dates: start: 20210127
  3. GENTAMICIN. [Concomitant]
     Active Substance: GENTAMICIN
     Dosage: USE
     Dates: start: 20201105, end: 20201203
  4. EPIPEN [Concomitant]
     Active Substance: EPINEPHRINE
     Dosage: INJECT ONE PEN BY INTRAMUSCULAR INJECTION WHEN ... UNIT DOSE : 1 DOSAGE FORMS
     Route: 030
     Dates: start: 20210127
  5. FLUCLOXACILLIN [Concomitant]
     Active Substance: FLUCLOXACILLIN
     Dosage: 8 DOSAGE FORMS DAILY; UNIT DOSE : 2 DOSAGE FORMS
     Dates: start: 20201105, end: 20201112
  6. AMLODIPINE [Concomitant]
     Active Substance: AMLODIPINE BESYLATE
     Dosage: 1 DOSAGE FORMS DAILY;
     Dates: start: 20200623
  7. RAMIPRIL. [Concomitant]
     Active Substance: RAMIPRIL
     Dosage: 1 DOSAGE FORMS DAILY;
     Dates: start: 20200623, end: 20210127

REACTIONS (1)
  - Anaphylactic reaction [Recovered/Resolved]

NARRATIVE: CASE EVENT DATE: 20210127
